FAERS Safety Report 13034044 (Version 1)
Quarter: 2016Q4

REPORT INFORMATION
  Report Type: Spontaneous
  Country: US (occurrence: US)
  Receive Date: 20161215
  Receipt Date: 20161215
  Transmission Date: 20170207
  Serious: No
  Sender: FDA-Public Use
  Company Number: None

PATIENT
  Age: 36 Year
  Sex: Female
  Weight: 69.75 kg

DRUGS (12)
  1. MELATONIN [Concomitant]
     Active Substance: MELATONIN
  2. FENTANYL TRANSDERMAL SYSTEM [Suspect]
     Active Substance: FENTANYL
     Indication: PAIN
     Dosage: ?          OTHER STRENGTH:MCG/H;QUANTITY:10 PATCH(ES);OTHER FREQUENCY:72 HOURS;?
     Route: 062
     Dates: start: 20161119, end: 20161215
  3. ULTRAM [Concomitant]
     Active Substance: TRAMADOL HYDROCHLORIDE
  4. MULTIVITAMIN [Concomitant]
     Active Substance: VITAMINS
  5. BIOTIN [Concomitant]
     Active Substance: BIOTIN
  6. SYNTHROID [Concomitant]
     Active Substance: LEVOTHYROXINE SODIUM
  7. RITALIN [Concomitant]
     Active Substance: METHYLPHENIDATE HYDROCHLORIDE
  8. MELOXICAM. [Concomitant]
     Active Substance: MELOXICAM
  9. MAGNESIUM [Concomitant]
     Active Substance: MAGNESIUM
  10. FENTANYL TRANSDERMAL SYSTEM [Suspect]
     Active Substance: FENTANYL
     Indication: FIBROMYALGIA
     Dosage: ?          OTHER STRENGTH:MCG/H;QUANTITY:10 PATCH(ES);OTHER FREQUENCY:72 HOURS;?
     Route: 062
     Dates: start: 20161119, end: 20161215
  11. PROZAC [Concomitant]
     Active Substance: FLUOXETINE HYDROCHLORIDE
  12. FENTANYL TRANSDERMAL SYSTEM [Suspect]
     Active Substance: FENTANYL
     Indication: SPINAL DISORDER
     Dosage: ?          OTHER STRENGTH:MCG/H;QUANTITY:10 PATCH(ES);OTHER FREQUENCY:72 HOURS;?
     Route: 062
     Dates: start: 20161119, end: 20161215

REACTIONS (8)
  - Product adhesion issue [None]
  - Application site pruritus [None]
  - Application site exfoliation [None]
  - Application site haemorrhage [None]
  - Application site pain [None]
  - Product substitution issue [None]
  - Application site rash [None]
  - Application site erythema [None]

NARRATIVE: CASE EVENT DATE: 20161119
